FAERS Safety Report 13260657 (Version 1)
Quarter: 2017Q1

REPORT INFORMATION
  Report Type: Report from Study
  Country: JP (occurrence: JP)
  Receive Date: 20170222
  Receipt Date: 20170222
  Transmission Date: 20170428
  Serious: Yes (Other)
  Sender: FDA-Public Use
  Company Number: JP-AEGERION PHARMACEUTICAL, INC-AEGR003013

PATIENT

DRUGS (8)
  1. DOCOSAHEXAENOIC ACID [Concomitant]
     Active Substance: DOCONEXENT
     Indication: SUPPLEMENTATION THERAPY
     Dosage: 80 MG, QD
     Route: 065
  2. ALPHA-LINOLENIC ACID [Concomitant]
     Active Substance: LINOLENIC ACID
     Indication: SUPPLEMENTATION THERAPY
     Dosage: 210 MG, QD
     Route: 065
  3. LOMITAPIDE [Suspect]
     Active Substance: LOMITAPIDE MESYLATE
     Indication: TYPE IIA HYPERLIPIDAEMIA
     Dosage: 5 MG, QD
     Route: 048
  4. LOMITAPIDE [Suspect]
     Active Substance: LOMITAPIDE MESYLATE
     Dosage: ESCALATED TO MTD TO MAX OF 60 MG/DAYUNK
     Route: 048
  5. EICOSAPENTAENOIC ACID [Concomitant]
     Active Substance: ICOSAPENT
     Indication: SUPPLEMENTATION THERAPY
     Dosage: 110 MG, QD
     Route: 065
  6. ATORVASTATIN [Concomitant]
     Active Substance: ATORVASTATIN
     Indication: TYPE IIA HYPERLIPIDAEMIA
     Dosage: UNK
     Route: 065
  7. VITAMIN E [Concomitant]
     Active Substance: .ALPHA.-TOCOPHEROL
     Indication: SUPPLEMENTATION THERAPY
     Dosage: 400 IU, QD
     Route: 065
  8. LINOLEIC ACID [Concomitant]
     Active Substance: LINOLEIC ACID
     Indication: SUPPLEMENTATION THERAPY
     Dosage: } 200 MG, QD
     Route: 065

REACTIONS (1)
  - Hepatic steatosis [Recovering/Resolving]
